FAERS Safety Report 18407869 (Version 4)
Quarter: 2020Q4

REPORT INFORMATION
  Report Type: Spontaneous
  Country: JP (occurrence: JP)
  Receive Date: 20201020
  Receipt Date: 20201130
  Transmission Date: 20210114
  Serious: Yes (Hospitalization)
  Sender: FDA-Public Use
  Company Number: JP-009507513-2010JPN000515J

PATIENT
  Age: 76 Year
  Sex: Male
  Weight: 45 kg

DRUGS (5)
  1. VANCOMYCIN [Suspect]
     Active Substance: VANCOMYCIN
     Indication: SEPSIS
     Dosage: 1.0 GRAM, BID
     Route: 042
     Dates: start: 20200429, end: 20200505
  2. CUBICIN [Suspect]
     Active Substance: DAPTOMYCIN
     Indication: STAPHYLOCOCCAL SEPSIS
     Dosage: 300 MILLIGRAM, QD
     Route: 041
     Dates: start: 20200420, end: 20200428
  3. MEROPEN [Suspect]
     Active Substance: MEROPENEM
     Indication: URINARY TRACT INFECTION
     Dosage: 0.5 GRAM, BID
     Route: 042
     Dates: start: 20200508, end: 20200509
  4. COAHIBITOR [Suspect]
     Active Substance: NAFAMOSTAT MESYLATE
     Indication: HAEMODIALYSIS
     Dosage: 10 MILLIGRAM, QD
     Route: 042
     Dates: start: 20200508, end: 20200509
  5. ZOSYN [Suspect]
     Active Substance: PIPERACILLIN SODIUM\TAZOBACTAM SODIUM
     Indication: PNEUMONIA PSEUDOMONAL
     Dosage: 4.5 GRAM, TID
     Route: 041
     Dates: start: 20200414, end: 20200427

REACTIONS (1)
  - Drug eruption [Recovered/Resolved]

NARRATIVE: CASE EVENT DATE: 20200428
